FAERS Safety Report 6739056-X (Version None)
Quarter: 2010Q2

REPORT INFORMATION
  Report Type: 
  Country: None (occurrence: None)
  Receive Date: 20100524
  Receipt Date: 20100524
  Transmission Date: 20101027
  Serious: No
  Sender: FDA-Public Use
  Company Number: None

PATIENT
  Age: 57 Year
  Sex: Male
  Weight: 65.7716 kg

DRUGS (1)
  1. CIPROFLOXACIN [Suspect]
     Indication: PROSTATITIS
     Dosage: ONE TABLET TWICE DAILY PO
     Route: 048
     Dates: start: 20100518, end: 20100520

REACTIONS (7)
  - ABDOMINAL DISTENSION [None]
  - ARTHRALGIA [None]
  - ASTHENIA [None]
  - DYSURIA [None]
  - FLATULENCE [None]
  - MUSCLE TIGHTNESS [None]
  - PAIN IN EXTREMITY [None]
